FAERS Safety Report 9457404 (Version 1)
Quarter: 2013Q3

REPORT INFORMATION
  Report Type: Spontaneous
  Country: ES (occurrence: ES)
  Receive Date: 20130814
  Receipt Date: 20130814
  Transmission Date: 20140515
  Serious: Yes (Hospitalization)
  Sender: FDA-Public Use
  Company Number: ES-RANBAXY-2013R1-72222

PATIENT
  Age: 71 Year
  Sex: Female

DRUGS (3)
  1. LISINOPRIL/HYDROCHLOROTHIAZIDE [Suspect]
     Indication: HYPERTENSION
     Dosage: 20/12.5 MG/DAY
     Route: 065
  2. CALCIUM CARBONATE [Suspect]
     Indication: HYPOPARATHYROIDISM
     Dosage: 900 MG PER DAY
     Route: 065
  3. CALCITRIOL [Suspect]
     Indication: HYPOPARATHYROIDISM
     Dosage: 1 UG/DAY
     Route: 065

REACTIONS (3)
  - Renal failure [Recovered/Resolved]
  - Hypercalcaemia [Recovered/Resolved]
  - Metabolic alkalosis [Recovered/Resolved]
